FAERS Safety Report 5426953-0 (Version None)
Quarter: 2007Q3

REPORT INFORMATION
  Report Type: 
  Country: None (occurrence: None)
  Receive Date: 20070731
  Receipt Date: 20070423
  Transmission Date: 20080115
  Serious: No
  Sender: FDA-Public Use
  Company Number: US200704005254

PATIENT
  Age: 60 Year
  Sex: Female
  Weight: 118.8 kg

DRUGS (4)
  1. BYETTA [Suspect]
     Indication: TYPE 2 DIABETES MELLITUS
     Dosage: 5 UG, 2/D, SUBCUTANEOUS, 10 UG, 2/D, SUBCUTANEOUS
     Route: 058
     Dates: start: 20061201, end: 20070201
  2. BYETTA [Suspect]
     Indication: TYPE 2 DIABETES MELLITUS
     Dosage: 5 UG, 2/D, SUBCUTANEOUS, 10 UG, 2/D, SUBCUTANEOUS
     Route: 058
     Dates: start: 20070201
  3. EXENATIDE [Concomitant]
  4. TRICOR [Concomitant]

REACTIONS (7)
  - DIARRHOEA [None]
  - EYE SWELLING [None]
  - MALAISE [None]
  - NAUSEA [None]
  - PARANASAL SINUS HYPERSECRETION [None]
  - SINUSITIS [None]
  - VOMITING [None]
